FAERS Safety Report 5036620-3 (Version None)
Quarter: 2006Q2

REPORT INFORMATION
  Report Type: 
  Country: None (occurrence: None)
  Receive Date: 20060531
  Receipt Date: 20060410
  Transmission Date: 20061013
  Serious: No
  Sender: FDA-Public Use
  Company Number: PHEH2006US04702

PATIENT
  Age: 62 Year
  Sex: Female

DRUGS (4)
  1. EXJADE [Suspect]
     Indication: BLOOD IRON DECREASED
     Dosage: 1875 MG, QD, ORAL
     Route: 048
     Dates: start: 20060301
  2. LEUKINE [Concomitant]
  3. PROCRIT [Concomitant]
  4. RESTASIS (CICLOSPORIN) [Concomitant]

REACTIONS (1)
  - VISUAL DISTURBANCE [None]
